FAERS Safety Report 18373624 (Version 8)
Quarter: 2020Q4

REPORT INFORMATION
  Report Type: Spontaneous
  Country: HR (occurrence: HR)
  Receive Date: 20201013
  Receipt Date: 20201123
  Transmission Date: 20210114
  Serious: Yes (Other)
  Sender: FDA-Public Use
  Company Number: HR-ROCHE-2693038

PATIENT
  Age: 80 Year
  Sex: Male

DRUGS (7)
  1. EYLIA [Suspect]
     Active Substance: AFLIBERCEPT
     Route: 065
     Dates: start: 202001
  2. LUCENTIS [Suspect]
     Active Substance: RANIBIZUMAB
     Route: 065
     Dates: start: 202005
  3. BEOVU [Suspect]
     Active Substance: BROLUCIZUMAB-DBLL
     Dosage: UNKNOWN DEVICE
     Route: 065
  4. EYLIA [Suspect]
     Active Substance: AFLIBERCEPT
     Indication: ANGIOPATHY
     Route: 065
     Dates: start: 201907
  5. AVASTIN [Suspect]
     Active Substance: BEVACIZUMAB
     Indication: ANGIOPATHY
     Route: 065
  6. LUCENTIS [Suspect]
     Active Substance: RANIBIZUMAB
     Indication: ANGIOPATHY
     Route: 065
     Dates: start: 201911
  7. BEOVU [Suspect]
     Active Substance: BROLUCIZUMAB-DBLL
     Indication: ANGIOPATHY
     Route: 065
     Dates: start: 202006

REACTIONS (1)
  - Detachment of retinal pigment epithelium [Unknown]
